FAERS Safety Report 21017571 (Version 1)
Quarter: 2022Q2

REPORT INFORMATION
  Report Type: Spontaneous
  Country: US (occurrence: None)
  Receive Date: 20220627
  Receipt Date: 20220627
  Transmission Date: 20220721
  Serious: Yes (Hospitalization, Other)
  Sender: FDA-Public Use
  Company Number: None

PATIENT
  Age: 38 Year
  Sex: Female
  Weight: 78.75 kg

DRUGS (3)
  1. BENZOIN [Suspect]
     Active Substance: ALOE\BENZOIN\LIQUIDAMBAR STYRACIFLUA RESIN\TOLU BALSAM
     Indication: Postoperative care
     Dosage: FREQUENCY : AS NEEDED;?
     Route: 061
     Dates: start: 20220615, end: 20220625
  2. BENZOIN [Suspect]
     Active Substance: ALOE\BENZOIN\LIQUIDAMBAR STYRACIFLUA RESIN\TOLU BALSAM
     Indication: Wound treatment
  3. Spironalactone 50mg [Concomitant]

REACTIONS (7)
  - Drug hypersensitivity [None]
  - Condition aggravated [None]
  - Dermatitis contact [None]
  - Wound secretion [None]
  - Pustule [None]
  - Erythema [None]
  - Skin exfoliation [None]

NARRATIVE: CASE EVENT DATE: 20220625
